FAERS Safety Report 18659011 (Version 2)
Quarter: 2020Q4

REPORT INFORMATION
  Report Type: Spontaneous
  Country: US (occurrence: US)
  Receive Date: 20201224
  Receipt Date: 20201229
  Transmission Date: 20210114
  Serious: No
  Sender: FDA-Public Use
  Company Number: US-GLAXOSMITHKLINE-US2020AMR251317

PATIENT
  Sex: Female

DRUGS (1)
  1. ZEJULA [Suspect]
     Active Substance: NIRAPARIB
     Indication: OVARIAN CANCER
     Dosage: 300 MG, QD
     Route: 048
     Dates: start: 20201127, end: 20201223

REACTIONS (8)
  - Asthenia [Unknown]
  - Constipation [Unknown]
  - Sleep disorder [Unknown]
  - Hypertension [Unknown]
  - Platelet count decreased [Not Recovered/Not Resolved]
  - Muscle tightness [Unknown]
  - Glomerular filtration rate decreased [Unknown]
  - Muscle spasms [Unknown]
